FAERS Safety Report 5502332-2 (Version None)
Quarter: 2007Q4

REPORT INFORMATION
  Report Type: 
  Country: None (occurrence: None)
  Receive Date: 20071030
  Receipt Date: 20071015
  Transmission Date: 20080405
  Serious: Yes (Hospitalization, Other)
  Sender: FDA-Public Use
  Company Number: US-SHR-US-2007-018215

PATIENT
  Age: 62 Year
  Sex: Female
  Weight: 74 kg

DRUGS (9)
  1. BETASERON [Suspect]
     Indication: MULTIPLE SCLEROSIS
     Dosage: 8 MIU, EVERY 2D
     Route: 058
     Dates: start: 20031113
  2. BACLOFEN [Concomitant]
     Dosage: 500 A?G/ML, CONT. PUMP
     Route: 037
  3. METRONIDAZOLE [Concomitant]
     Indication: VAGINAL INFECTION
     Dosage: 250 MG, AS REQ'D
     Route: 048
  4. SILVADENE [Concomitant]
     Indication: WOUND
     Dosage: 1 %, 1X/DAY
     Route: 061
  5. MIRALAX [Concomitant]
     Dosage: 1 DAILY
  6. XEROFORM [Concomitant]
     Indication: WOUND
     Dosage: UNK, UNK
     Route: 061
  7. VANTIN [Concomitant]
     Indication: UROSEPSIS
     Dates: start: 20070101
  8. METAGLIP [Concomitant]
     Indication: TYPE 2 DIABETES MELLITUS
     Dosage: UNK TAB(S), 1X/DAY
     Route: 048
     Dates: start: 20070101
  9. LANTUS [Concomitant]
     Indication: TYPE 2 DIABETES MELLITUS
     Dates: start: 20070101

REACTIONS (12)
  - ABDOMINAL PAIN [None]
  - BACK PAIN [None]
  - BLOOD GLUCOSE DECREASED [None]
  - COMA [None]
  - CONSTIPATION [None]
  - MOBILITY DECREASED [None]
  - NAUSEA [None]
  - SKIN ULCER [None]
  - SPEECH DISORDER [None]
  - TYPE 2 DIABETES MELLITUS [None]
  - UROSEPSIS [None]
  - UROSTOMY COMPLICATION [None]
